FAERS Safety Report 10039775 (Version 2)
Quarter: 2014Q2

REPORT INFORMATION
  Report Type: Spontaneous
  Country: JP (occurrence: JP)
  Receive Date: 20140326
  Receipt Date: 20140417
  Transmission Date: 20141212
  Serious: Yes (Hospitalization, Other)
  Sender: FDA-Public Use
  Company Number: JP-JNJFOC-20140313425

PATIENT
  Age: 51 Year
  Sex: Male
  Weight: 67.2 kg

DRUGS (12)
  1. SOVRIAD [Suspect]
     Indication: CHRONIC HEPATITIS C
     Route: 048
     Dates: start: 20140307
  2. PROGRAF [Suspect]
     Indication: IMMUNOSUPPRESSION
     Route: 048
     Dates: start: 20140312
  3. PROGRAF [Suspect]
     Indication: IMMUNOSUPPRESSION
     Route: 048
     Dates: start: 20080911, end: 20140310
  4. NULOTAN [Suspect]
     Indication: HYPERTENSION
     Route: 048
     Dates: start: 20130419
  5. PEGINTRON [Concomitant]
     Indication: CHRONIC HEPATITIS C
     Route: 058
     Dates: start: 20140307
  6. REBETOL [Concomitant]
     Indication: CHRONIC HEPATITIS C
     Route: 048
     Dates: start: 20140307
  7. CELLCEPT [Concomitant]
     Indication: IMMUNOSUPPRESSION
     Route: 048
     Dates: start: 20081226
  8. ALOSITOL [Concomitant]
     Indication: HYPERURICAEMIA
     Route: 048
     Dates: start: 20100910
  9. GLYCYRON [Concomitant]
     Indication: CHRONIC HEPATITIS C
     Route: 048
     Dates: start: 20131004
  10. URSO [Concomitant]
     Indication: CHRONIC HEPATITIS C
     Route: 048
     Dates: start: 20081002
  11. LOCHOL [Concomitant]
     Indication: DYSLIPIDAEMIA
     Route: 048
     Dates: start: 20090129
  12. PARIET [Concomitant]
     Indication: GASTROOESOPHAGEAL REFLUX DISEASE
     Route: 048
     Dates: start: 20100409

REACTIONS (3)
  - Haemoglobin decreased [Unknown]
  - Renal impairment [Recovered/Resolved]
  - Immunosuppressant drug level increased [Recovered/Resolved]
